FAERS Safety Report 21448217 (Version 1)
Quarter: 2022Q4

REPORT INFORMATION
  Report Type: Spontaneous
  Country: US (occurrence: None)
  Receive Date: 20221011
  Receipt Date: 20221011
  Transmission Date: 20230112
  Serious: No
  Sender: FDA-Public Use
  Company Number: None

PATIENT
  Age: 60 Year
  Sex: Female
  Weight: 66.22 kg

DRUGS (11)
  1. PIQRAY [Suspect]
     Active Substance: ALPELISIB
     Indication: Breast cancer female
     Dosage: 250MG DAILY ORAL
     Route: 048
  2. CLARITIN [Concomitant]
     Active Substance: LORATADINE
  3. FULVESTRANT [Concomitant]
     Active Substance: FULVESTRANT
  4. GLUCOSAMINE [Concomitant]
     Active Substance: GLUCOSAMINE
  5. JARDIANCE [Concomitant]
     Active Substance: EMPAGLIFLOZIN
  6. VITAMINS [Concomitant]
     Active Substance: VITAMINS
  7. NORCO [Concomitant]
     Active Substance: ACETAMINOPHEN\HYDROCODONE BITARTRATE
  8. ONDANSETRON HCL [Concomitant]
     Active Substance: ONDANSETRON HYDROCHLORIDE
  9. VITAMIN C [Concomitant]
     Active Substance: ASCORBIC ACID
  10. ZOMETA [Concomitant]
     Active Substance: ZOLEDRONIC ACID
  11. ACETAMINOPHEN [Concomitant]

REACTIONS (1)
  - Disease progression [None]
